FAERS Safety Report 7996732-9 (Version None)
Quarter: 2011Q4

REPORT INFORMATION
  Report Type: 
  Country: None (occurrence: None)
  Receive Date: 20111123
  Receipt Date: 20110822
  Transmission Date: 20120403
  Serious: No
  Sender: FDA-Public Use
  Company Number: 329933

PATIENT
  Age: 60 Year
  Sex: Female
  Weight: 58.5 kg

DRUGS (1)
  1. VICTOZA [Suspect]
     Indication: TYPE 2 DIABETES MELLITUS
     Dosage: 0.6 MG, QD, SUBCUTANEOUS
     Route: 058
     Dates: start: 20100801

REACTIONS (10)
  - FEELING COLD [None]
  - WEIGHT INCREASED [None]
  - HEADACHE [None]
  - DYSPHONIA [None]
  - IRRITABILITY [None]
  - INSOMNIA [None]
  - FATIGUE [None]
  - DECREASED APPETITE [None]
  - NAUSEA [None]
  - TRI-IODOTHYRONINE INCREASED [None]
